FAERS Safety Report 5679157-0 (Version None)
Quarter: 2008Q1

REPORT INFORMATION
  Report Type: 
  Country: None (occurrence: None)
  Receive Date: 20080325
  Receipt Date: 20080320
  Transmission Date: 20080703
  Serious: Yes (Other)
  Sender: FDA-Public Use
  Company Number: GB-WYE-G01286408

PATIENT
  Sex: Male

DRUGS (4)
  1. EFFEXOR [Suspect]
  2. EFFEXOR [Suspect]
  3. EFFEXOR [Suspect]
     Dosage: HALF A TABLET
  4. EFFEXOR [Suspect]
     Dosage: QUARTER OF A TABLET
     Dates: end: 20080201

REACTIONS (10)
  - DRUG WITHDRAWAL SYNDROME [None]
  - DYSPHAGIA [None]
  - DYSPNOEA [None]
  - EYE MOVEMENT DISORDER [None]
  - FACIAL PALSY [None]
  - FACIAL SPASM [None]
  - HEART RATE DECREASED [None]
  - MUSCLE TWITCHING [None]
  - PARAESTHESIA [None]
  - WRONG TECHNIQUE IN DRUG USAGE PROCESS [None]
